FAERS Safety Report 16564450 (Version 1)
Quarter: 2019Q3

REPORT INFORMATION
  Report Type: Spontaneous
  Country: US (occurrence: US)
  Receive Date: 20190711
  Receipt Date: 20190711
  Transmission Date: 20191004
  Serious: No
  Sender: FDA-Public Use
  Company Number: None

PATIENT
  Age: 65 Year
  Sex: Male

DRUGS (1)
  1. ABIRATERONE ACETATE. [Suspect]
     Active Substance: ABIRATERONE ACETATE
     Dates: start: 20190617

REACTIONS (3)
  - Middle ear effusion [None]
  - Fatigue [None]
  - Night sweats [None]

NARRATIVE: CASE EVENT DATE: 20190711
